FAERS Safety Report 6158156-9 (Version None)
Quarter: 2009Q2

REPORT INFORMATION
  Report Type: 
  Country: None (occurrence: None)
  Receive Date: 20090417
  Receipt Date: 20090409
  Transmission Date: 20091009
  Serious: No
  Sender: FDA-Public Use
  Company Number: US-ROCHE-626798

PATIENT
  Sex: Female

DRUGS (3)
  1. ISOTRETINOIN [Suspect]
     Indication: DRUG USE FOR UNKNOWN INDICATION
     Dosage: PATIENT DISPENSED WITH ACCUTANE 20 MG CAP ON 21 JAN 2009
     Route: 065
     Dates: start: 20090121
  2. CLARAVIS [Suspect]
     Indication: DRUG USE FOR UNKNOWN INDICATION
     Dosage: DISPENSED CLARAVIS 20 MG CAP ON 02FEB08 AND 07MARCH08.
     Route: 065
     Dates: start: 20080202
  3. CLARAVIS [Suspect]
     Dosage: DISPENSED CLARAVIS 40 MG CAPSULE ON 13 AUG 2007.
     Route: 065
     Dates: start: 20070813

REACTIONS (2)
  - NO ADVERSE EVENT [None]
  - PREGNANCY [None]
